FAERS Safety Report 6958400-1 (Version None)
Quarter: 2010Q3

REPORT INFORMATION
  Report Type: 
  Country: None (occurrence: None)
  Receive Date: 20100831
  Receipt Date: 20100818
  Transmission Date: 20110219
  Serious: Yes (Hospitalization)
  Sender: FDA-Public Use
  Company Number: BR-US-EMD SERONO, INC.-7014263

PATIENT
  Sex: Female

DRUGS (2)
  1. REBIF [Suspect]
     Indication: RELAPSING-REMITTING MULTIPLE SCLEROSIS
     Route: 058
     Dates: start: 20091111, end: 20100806
  2. REBIF [Suspect]
     Route: 058
     Dates: start: 20100816

REACTIONS (7)
  - BLOOD CHOLESTEROL INCREASED [None]
  - CENTRAL NERVOUS SYSTEM LESION [None]
  - HEPATIC STEATOSIS [None]
  - HYPERAEMIA [None]
  - MULTIPLE SCLEROSIS RELAPSE [None]
  - OESOPHAGITIS [None]
  - SOMNOLENCE [None]
